FAERS Safety Report 7783999-5 (Version None)
Quarter: 2011Q3

REPORT INFORMATION
  Report Type: 
  Country: None (occurrence: None)
  Receive Date: 20110928
  Receipt Date: 20110918
  Transmission Date: 20111222
  Serious: Yes (Other)
  Sender: FDA-Public Use
  Company Number: AU-ALLERGAN-1112639US

PATIENT

DRUGS (1)
  1. BOTULINUM TOXIN TYPE A [Suspect]
     Indication: CEREBRAL PALSY
     Dosage: 400 UNITS, SINGLE

REACTIONS (2)
  - DYSPHONIA [None]
  - DROOLING [None]
